FAERS Safety Report 25252345 (Version 1)
Quarter: 2025Q2

REPORT INFORMATION
  Report Type: Spontaneous
  Country: US (occurrence: US)
  Receive Date: 20250429
  Receipt Date: 20250429
  Transmission Date: 20250716
  Serious: No
  Sender: DR REDDYS
  Company Number: US-DRL-USA-USA/2025/04/005978

PATIENT
  Age: 26 Year
  Sex: Female

DRUGS (1)
  1. LUBIPROSTONE [Suspect]
     Active Substance: LUBIPROSTONE
     Indication: Irritable bowel syndrome
     Dosage: 24 MCG TWICE DAILY

REACTIONS (2)
  - Clubbing [Recovered/Resolved]
  - Treatment noncompliance [Unknown]
